FAERS Safety Report 12343867 (Version 3)
Quarter: 2016Q2

REPORT INFORMATION
  Report Type: Spontaneous
  Country: FR (occurrence: FR)
  Receive Date: 20160507
  Receipt Date: 20160606
  Transmission Date: 20160815
  Serious: Yes (Life-Threatening, Hospitalization, Other)
  Sender: FDA-Public Use
  Company Number: FR-AUROBINDO-AUR-APL-2016-05704

PATIENT
  Age: 72 Year
  Sex: Female

DRUGS (1)
  1. FLECAINIDE [Suspect]
     Active Substance: FLECAINIDE
     Indication: PRODUCT USED FOR UNKNOWN INDICATION
     Dosage: 3 G, UNK
     Route: 048

REACTIONS (10)
  - Shock [Recovered/Resolved]
  - Loss of consciousness [Recovered/Resolved]
  - Cardiogenic shock [Recovered/Resolved]
  - Myoclonus [Recovered/Resolved]
  - Parkinsonism [Recovering/Resolving]
  - Hypokinesia [Recovered/Resolved]
  - Masked facies [Recovered/Resolved]
  - Muscle rigidity [Recovered/Resolved]
  - Post-anoxic myoclonus [Recovered/Resolved]
  - Toxicity to various agents [Recovered/Resolved]
